FAERS Safety Report 20934424 (Version 1)
Quarter: 2022Q2

REPORT INFORMATION
  Report Type: Spontaneous
  Country: US (occurrence: None)
  Receive Date: 20220607
  Receipt Date: 20220607
  Transmission Date: 20220721
  Serious: Yes (Other)
  Sender: FDA-Public Use
  Company Number: None

PATIENT
  Age: 54 Year
  Sex: Female

DRUGS (6)
  1. AUSTEDO [Suspect]
     Active Substance: DEUTETRABENAZINE
     Indication: Tardive dyskinesia
     Dates: start: 20210402, end: 20220407
  2. CLONAZEPAM [Concomitant]
     Active Substance: CLONAZEPAM
  3. ESTRADIOL [Concomitant]
     Active Substance: ESTRADIOL
  4. LISINOPRIL [Concomitant]
     Active Substance: LISINOPRIL
  5. TIZANIDINE [Concomitant]
     Active Substance: TIZANIDINE
  6. ATENOLOL [Concomitant]
     Active Substance: ATENOLOL

REACTIONS (1)
  - Hepatic function abnormal [None]

NARRATIVE: CASE EVENT DATE: 20220407
